FAERS Safety Report 7562759-4 (Version None)
Quarter: 2011Q2

REPORT INFORMATION
  Report Type: 
  Country: None (occurrence: None)
  Receive Date: 20110622
  Receipt Date: 20110617
  Transmission Date: 20111010
  Serious: Yes (Hospitalization)
  Sender: FDA-Public Use
  Company Number: GB-PFIZER INC-2011135121

PATIENT
  Age: 77 Year
  Sex: Female

DRUGS (3)
  1. LANSOPRAZOLE [Concomitant]
     Dosage: UNK
  2. PARACETAMOL [Concomitant]
     Dosage: UNK
  3. PIROXICAM [Suspect]
     Dosage: 3 DF, 1X/DAY
     Route: 061
     Dates: start: 20110601

REACTIONS (1)
  - WHEEZING [None]
